FAERS Safety Report 6681685-6 (Version None)
Quarter: 2010Q2

REPORT INFORMATION
  Report Type: 
  Country: None (occurrence: None)
  Receive Date: 20100414
  Receipt Date: 20100409
  Transmission Date: 20101027
  Serious: Yes (Other)
  Sender: FDA-Public Use
  Company Number: US-ASTRAZENECA-2010SE16051

PATIENT
  Age: 62 Year
  Sex: Male

DRUGS (1)
  1. METOPROLOL SUCCINATE [Suspect]
     Route: 048
     Dates: start: 20040101, end: 20100201

REACTIONS (6)
  - AMNESIA [None]
  - ANGINA PECTORIS [None]
  - CONVULSION [None]
  - DIABETES MELLITUS [None]
  - DRUG DOSE OMISSION [None]
  - HYPOAESTHESIA [None]
